FAERS Safety Report 9307547 (Version 1)
Quarter: 2013Q2

REPORT INFORMATION
  Report Type: Spontaneous
  Country: FR (occurrence: FR)
  Receive Date: 20130524
  Receipt Date: 20130524
  Transmission Date: 20140414
  Serious: Yes (Other)
  Sender: FDA-Public Use
  Company Number: FR-JNJFOC-20130512438

PATIENT
  Age: 40 Year
  Sex: Male

DRUGS (10)
  1. REMICADE [Suspect]
     Indication: PRODUCT USED FOR UNKNOWN INDICATION
     Dosage: 5MG/KG
     Route: 042
     Dates: start: 201205
  2. REMICADE [Suspect]
     Indication: PRODUCT USED FOR UNKNOWN INDICATION
     Route: 042
     Dates: start: 201209
  3. REMICADE [Suspect]
     Indication: PRODUCT USED FOR UNKNOWN INDICATION
     Route: 042
     Dates: start: 201211
  4. REMICADE [Suspect]
     Indication: PRODUCT USED FOR UNKNOWN INDICATION
     Dosage: 3RD INFUSION
     Route: 042
     Dates: start: 20120622
  5. METHOTREXATE [Concomitant]
     Dosage: 3.5714 MG SINCE THE END OF 2011.
     Route: 065
     Dates: start: 2011
  6. AERIUS [Concomitant]
     Indication: PREMEDICATION
     Route: 065
  7. SOLUMEDROL (METHYLPREDNISOLONE SODIUM SUCCINATE) [Concomitant]
     Indication: PREMEDICATION
     Route: 065
  8. POLARAMINE (DEXCHLORPHENIRAMINE) [Concomitant]
     Indication: PREMEDICATION
     Route: 065
  9. SINGULAIR [Concomitant]
     Indication: PREMEDICATION
     Route: 065
  10. HYDROCORTISONE [Concomitant]
     Indication: PREMEDICATION
     Route: 065

REACTIONS (3)
  - Anaphylactoid reaction [Recovered/Resolved]
  - Infusion related reaction [Recovered/Resolved]
  - Skin test negative [Unknown]
